FAERS Safety Report 6609829-2 (Version None)
Quarter: 2010Q1

REPORT INFORMATION
  Report Type: 
  Country: None (occurrence: None)
  Receive Date: 20100302
  Receipt Date: 20100218
  Transmission Date: 20100710
  Serious: Yes (Other)
  Sender: FDA-Public Use
  Company Number: PHEH2010US02094

PATIENT
  Sex: Female

DRUGS (3)
  1. SANDOSTATIN LAR [Suspect]
     Dosage: UNK, UNK
  2. OCTREOTIDE PAMOATE [Suspect]
     Dosage: UNK, TID
     Dates: start: 20080201
  3. OCTREOTIDE PAMOATE [Suspect]
     Dosage: UNK, TID

REACTIONS (4)
  - INJURY [None]
  - SELF-MEDICATION [None]
  - SKELETAL INJURY [None]
  - SYRINGE ISSUE [None]
